FAERS Safety Report 7586431-X (Version None)
Quarter: 2011Q4

REPORT INFORMATION
  Report Type: 
  Country: None (occurrence: None)
  Receive Date: 20110701
  Receipt Date: 20110623
  Transmission Date: 20120403
  Serious: Yes (Other)
  Sender: FDA-Public Use
  Company Number: B0727928A

PATIENT
  Age: 56 Year
  Sex: Male

DRUGS (5)
  1. RILUTEK [Concomitant]
     Route: 048
  2. HEPSERA [Suspect]
     Indication: HEPATITIS B
     Dosage: 10MG PER DAY
     Route: 048
  3. FAMOTIDINE [Concomitant]
     Route: 048
  4. LAMIVUDINE (EPIVIR HBV) [Suspect]
     Route: 048
  5. LIORESAL [Concomitant]
     Route: 048

REACTIONS (1)
  - MULTIPLE FRACTURES [None]
